FAERS Safety Report 21043462 (Version 1)
Quarter: 2022Q3

REPORT INFORMATION
  Report Type: Spontaneous
  Country: US (occurrence: US)
  Receive Date: 20220705
  Receipt Date: 20220705
  Transmission Date: 20221027
  Serious: No
  Sender: FDA-Public Use
  Company Number: US-SAREPTA THERAPEUTICS INC.-SRP2021-001791

PATIENT
  Age: 19 Year
  Sex: Male
  Weight: 37.642 kg

DRUGS (14)
  1. EXONDYS 51 [Suspect]
     Active Substance: ETEPLIRSEN
     Indication: Duchenne muscular dystrophy
     Dosage: 1100 MILLIGRAM, WEEKLY, PIV
     Route: 042
     Dates: start: 20180216, end: 20211027
  2. EXONDYS 51 [Suspect]
     Active Substance: ETEPLIRSEN
     Dosage: 1100 MILLIGRAM, WEEKLY, PIV
     Route: 042
     Dates: start: 20211103
  3. Calcium + D + K [Concomitant]
     Indication: Product used for unknown indication
     Dosage: 500-1000-40 UNK, QD
     Route: 048
     Dates: start: 20180214
  4. CLONAZEPAM [Concomitant]
     Active Substance: CLONAZEPAM
     Indication: Seizure
     Dosage: 0.25-0.5 MILLIGRAM, AS DIRECTED PRN SEIZURES
     Route: 048
     Dates: start: 20180214
  5. DIAZEPAM [Concomitant]
     Active Substance: DIAZEPAM
     Indication: Seizure
     Dosage: 7.5 MILLIGRAM, AS DIRECTED PRN SEIZURE
     Route: 054
     Dates: start: 20180214
  6. NEXIUM [Concomitant]
     Active Substance: ESOMEPRAZOLE MAGNESIUM
     Indication: Product used for unknown indication
     Dosage: 40 MILLIGRAM, QD
     Route: 048
     Dates: start: 20180214
  7. ZARONTIN [Concomitant]
     Active Substance: ETHOSUXIMIDE
     Indication: Product used for unknown indication
     Dosage: 250MG QAM, 500 MG QPM
     Route: 048
     Dates: start: 20180214
  8. NEURONTIN [Concomitant]
     Active Substance: GABAPENTIN
     Indication: Product used for unknown indication
     Dosage: 300 MILLIGRAM, TID
     Route: 048
     Dates: start: 20180214
  9. LAMICTAL [Concomitant]
     Active Substance: LAMOTRIGINE
     Indication: Product used for unknown indication
     Dosage: 225 MILLIGRAM, BID
     Route: 048
     Dates: start: 20180214
  10. LOSARTAN POTASSIUM [Concomitant]
     Active Substance: LOSARTAN POTASSIUM
     Indication: Product used for unknown indication
     Dosage: 25 MILLIGRAM, QD
     Route: 048
     Dates: start: 20180214
  11. MELATONIN [Concomitant]
     Active Substance: MELATONIN
     Indication: Product used for unknown indication
     Dosage: 3 MILLIGRAM, QD
     Route: 048
     Dates: start: 20180214
  12. MIRALAX [Concomitant]
     Active Substance: POLYETHYLENE GLYCOL 3350
     Indication: Product used for unknown indication
     Dosage: 17 GRAM, QD
     Route: 048
     Dates: start: 20180214
  13. PREDNISONE [Concomitant]
     Active Substance: PREDNISONE
     Indication: Product used for unknown indication
     Dosage: 40 MILLIGRAM, AS DIRECTED DAILY ON SAT AND SUN
     Route: 048
     Dates: start: 20180214
  14. PYRIDOXINE HYDROCHLORIDE [Concomitant]
     Active Substance: PYRIDOXINE HYDROCHLORIDE
     Indication: Product used for unknown indication
     Dosage: 100 MILLIGRAM, BID
     Route: 048
     Dates: start: 20180214

REACTIONS (2)
  - Product dose omission issue [Unknown]
  - No adverse event [Unknown]

NARRATIVE: CASE EVENT DATE: 20211027
